FAERS Safety Report 6059664-1 (Version None)
Quarter: 2009Q1

REPORT INFORMATION
  Report Type: 
  Country: None (occurrence: None)
  Receive Date: 20090128
  Receipt Date: 20090114
  Transmission Date: 20090719
  Serious: Yes (Hospitalization, Other)
  Sender: FDA-Public Use
  Company Number: 039429

PATIENT
  Age: 27 Year
  Sex: Female

DRUGS (2)
  1. CLARAVIS [Suspect]
     Indication: ACNE
     Dosage: 40 MG BID ORAL
     Route: 048
     Dates: start: 20081014
  2. SOTRET [Suspect]
     Indication: ACNE
     Dosage: UNK UNK ORAL
     Route: 048
     Dates: start: 20080911

REACTIONS (3)
  - CROHN'S DISEASE [None]
  - DEHYDRATION [None]
  - VIRAL INFECTION [None]
